FAERS Safety Report 13085209 (Version 2)
Quarter: 2017Q1

REPORT INFORMATION
  Report Type: Spontaneous
  Country: CN (occurrence: CN)
  Receive Date: 20170104
  Receipt Date: 20170113
  Transmission Date: 20170428
  Serious: Yes (Hospitalization)
  Sender: FDA-Public Use
  Company Number: CN-ELI_LILLY_AND_COMPANY-CN201612010956

PATIENT
  Sex: Female
  Weight: 53 kg

DRUGS (4)
  1. HUMALOG MIX75/25 [Suspect]
     Active Substance: INSULIN LISPRO
     Dosage: 10 IU, EACH EVENING
     Route: 058
     Dates: start: 201512, end: 20161203
  2. NOVONORM [Concomitant]
     Active Substance: REPAGLINIDE
  3. HUMALOG MIX75/25 [Suspect]
     Active Substance: INSULIN LISPRO
     Indication: DIABETES MELLITUS
     Dosage: 12 IU, EACH MORNING
     Route: 058
     Dates: start: 201512, end: 20161203
  4. GLUCOBAY [Concomitant]
     Active Substance: ACARBOSE

REACTIONS (2)
  - Cranial nerve disorder [Unknown]
  - Nasopharyngitis [Unknown]
